FAERS Safety Report 17416524 (Version 1)
Quarter: 2020Q1

REPORT INFORMATION
  Report Type: Spontaneous
  Country: US (occurrence: US)
  Receive Date: 20200213
  Receipt Date: 20200213
  Transmission Date: 20200409
  Serious: No
  Sender: FDA-Public Use
  Company Number: None

PATIENT
  Age: 56 Year
  Sex: Female

DRUGS (6)
  1. HUMIRA [Suspect]
     Active Substance: ADALIMUMAB
     Indication: CROHN^S DISEASE
     Dosage: ?          OTHER FREQUENCY:EVERY 7 DAYS;?
     Route: 058
     Dates: start: 20180322
  2. LACTATED RIN SOL IRRIGAT [Concomitant]
     Dates: start: 20200115
  3. MARINOL CAP 5MG [Concomitant]
     Dates: start: 20200115
  4. FOLIC ACID TAB 1MG [Concomitant]
     Dates: start: 20200115
  5. VITAMIN B-12 SUB 1000MCG [Concomitant]
     Dates: start: 20200115
  6. METHOTREXATE TAB 2.5MG [Concomitant]
     Active Substance: METHOTREXATE
     Dates: start: 20200115

REACTIONS (1)
  - Abscess [None]

NARRATIVE: CASE EVENT DATE: 20191231
